FAERS Safety Report 10377106 (Version 3)
Quarter: 2015Q2

REPORT INFORMATION
  Report Type: Spontaneous
  Country: US (occurrence: US)
  Receive Date: 20140812
  Receipt Date: 20150626
  Transmission Date: 20150821
  Serious: Yes (Other)
  Sender: FDA-Public Use
  Company Number: US-UCBSA-2014007221

PATIENT
  Age: 56 Year
  Sex: Female

DRUGS (7)
  1. ZANAFLEX [Suspect]
     Active Substance: TIZANIDINE HYDROCHLORIDE
  2. CYMBALTA [Suspect]
     Active Substance: DULOXETINE HYDROCHLORIDE
  3. ALPRAZOLAM. [Suspect]
     Active Substance: ALPRAZOLAM
  4. XYREM [Suspect]
     Active Substance: SODIUM OXYBATE
     Indication: FIBROMYALGIA
     Dosage: 3 G, 2X/DAY (BID), 500 MG/ML, NIGHTLY
     Route: 048
     Dates: start: 200810
  5. XYREM [Suspect]
     Active Substance: SODIUM OXYBATE
     Indication: OFF LABEL USE
     Dosage: 500 MG/ML, DOSE ADJUSTMENTS
     Route: 048
  6. LYRICA [Suspect]
     Active Substance: PREGABALIN
  7. XYREM [Suspect]
     Active Substance: SODIUM OXYBATE
     Dosage: 5 G, 2X/DAY (BID)
     Route: 048
     Dates: start: 2013

REACTIONS (3)
  - Off label use [Unknown]
  - Ankle fracture [Unknown]
  - Overdose [Unknown]

NARRATIVE: CASE EVENT DATE: 200810
